FAERS Safety Report 10262435 (Version 1)
Quarter: 2014Q2

REPORT INFORMATION
  Report Type: Spontaneous
  Country: US (occurrence: US)
  Receive Date: 20140626
  Receipt Date: 20140626
  Transmission Date: 20141212
  Serious: Yes (Hospitalization, Other)
  Sender: FDA-Public Use
  Company Number: US-TEVA-490712USA

PATIENT
  Age: 47 Year
  Sex: Female

DRUGS (2)
  1. COPAXONE 40 MG [Suspect]
     Indication: MULTIPLE SCLEROSIS
  2. COPAXONE [Suspect]
     Indication: MULTIPLE SCLEROSIS
     Dates: start: 20061211

REACTIONS (6)
  - Multiple sclerosis relapse [Recovering/Resolving]
  - Eye disorder [Recovering/Resolving]
  - Vision blurred [Recovering/Resolving]
  - Hypoaesthesia [Recovering/Resolving]
  - Oral infection [Unknown]
  - Drug dispensing error [Unknown]
